FAERS Safety Report 4564996-X (Version None)
Quarter: 2005Q1

REPORT INFORMATION
  Report Type: 
  Country: None (occurrence: None)
  Receive Date: 20050126
  Receipt Date: 20050119
  Transmission Date: 20050727
  Serious: Yes (Hospitalization, Other)
  Sender: FDA-Public Use
  Company Number: 2004115220

PATIENT
  Age: 79 Year
  Sex: Male
  Weight: 89 kg

DRUGS (6)
  1. TAHOR (ATORVASTATIN) [Suspect]
     Indication: DYSLIPIDAEMIA
     Dosage: 10 MG(1 IN 1 D), ORAL
     Route: 048
     Dates: end: 20041004
  2. GLICLAZIDE (GLICLAZIDE) [Suspect]
     Indication: DIABETES MELLITUS NON-INSULIN-DEPENDENT
     Dosage: (1 IN 1 D), ORAL
     Route: 048
  3. SALBUTAMOL (SALBUTAMOL) [Suspect]
     Indication: BRONCHITIS CHRONIC
     Dosage: INHALACION
     Route: 055
     Dates: end: 20041004
  4. BECLOMETHASONE DIPROPIONATE [Suspect]
     Indication: BRONCHITIS CHRONIC
     Dosage: (250 MCG), INHALATION
     Route: 055
     Dates: end: 20041004
  5. CO-DIOVAN (HYDROCHLOROTIAZIDE, VALSARTAN) [Suspect]
     Indication: ESSENTIAL HYPERTENSION
     Dosage: 80 MG (80 MG, 1 IN 1 D), ORAL
     Route: 048
     Dates: end: 20041004
  6. SERENOA REPENS (SERENOA REPENS) [Suspect]
     Indication: ILL-DEFINED DISORDER
     Dosage: 160 MG (160 MG, 1 IN 1 D), ORAL
     Route: 048
     Dates: end: 20041004

REACTIONS (11)
  - ANTINUCLEAR ANTIBODY POSITIVE [None]
  - ATELECTASIS [None]
  - CREATININE RENAL CLEARANCE DECREASED [None]
  - DRUG EFFECT DECREASED [None]
  - HYPERCAPNIC ENCEPHALOPATHY [None]
  - INFLAMMATION [None]
  - PERICARDIAL EFFUSION [None]
  - PLEURAL EFFUSION [None]
  - PLEURISY [None]
  - PLEUROPERICARDITIS [None]
  - VIRAL INFECTION [None]
